FAERS Safety Report 6764323-3 (Version None)
Quarter: 2010Q2

REPORT INFORMATION
  Report Type: 
  Country: None (occurrence: None)
  Receive Date: 20100610
  Receipt Date: 20100128
  Transmission Date: 20101027
  Serious: No
  Sender: FDA-Public Use
  Company Number: US-BRISTOL-MYERS SQUIBB COMPANY-14953871

PATIENT
  Sex: Female

DRUGS (2)
  1. FOSINOPRIL SODIUM [Suspect]
  2. MONOPRIL [Suspect]

REACTIONS (2)
  - ADVERSE EVENT [None]
  - THERAPEUTIC RESPONSE DECREASED [None]
